FAERS Safety Report 17694922 (Version 1)
Quarter: 2020Q2

REPORT INFORMATION
  Report Type: Report from Study
  Country: US (occurrence: US)
  Receive Date: 20200422
  Receipt Date: 20200422
  Transmission Date: 20200714
  Serious: Yes (Other)
  Sender: FDA-Public Use
  Company Number: NVSC2020US105104

PATIENT
  Age: 58 Year
  Sex: Female

DRUGS (1)
  1. ENTRESTO [Suspect]
     Active Substance: SACUBITRIL\VALSARTAN
     Indication: CARDIAC FAILURE
     Dosage: 3 DF, QD (1 TABLET IN AM AND 2 TABLETS IN PM)
     Route: 048
     Dates: start: 201804

REACTIONS (27)
  - Pain [Unknown]
  - Foot fracture [Unknown]
  - Dizziness [Not Recovered/Not Resolved]
  - Encephalitis [Unknown]
  - Syncope [Unknown]
  - Depression [Unknown]
  - Malaise [Unknown]
  - Back injury [Unknown]
  - Incorrect dose administered [Not Recovered/Not Resolved]
  - Vomiting [Not Recovered/Not Resolved]
  - Pneumothorax [Unknown]
  - Tympanic membrane perforation [Unknown]
  - Skin discolouration [Unknown]
  - Hypotension [Unknown]
  - Jaw fracture [Unknown]
  - High density lipoprotein increased [Not Recovered/Not Resolved]
  - Tendon rupture [Unknown]
  - Ligament sprain [Unknown]
  - Dyspnoea [Unknown]
  - Respiratory tract infection [Unknown]
  - Obesity [Not Recovered/Not Resolved]
  - Fracture [Unknown]
  - Low density lipoprotein increased [Not Recovered/Not Resolved]
  - Blood triglycerides decreased [Not Recovered/Not Resolved]
  - Hypertension [Unknown]
  - Feeling abnormal [Unknown]
  - Insomnia [Unknown]

NARRATIVE: CASE EVENT DATE: 202001
